FAERS Safety Report 19792226 (Version 2)
Quarter: 2021Q3

REPORT INFORMATION
  Report Type: Report from Study
  Country: KR (occurrence: KR)
  Receive Date: 20210906
  Receipt Date: 20210909
  Transmission Date: 20211014
  Serious: Yes (Hospitalization, Other)
  Sender: FDA-Public Use
  Company Number: KR-VIIV HEALTHCARE LIMITED-KR2021GSK183245

PATIENT
  Age: 78 Year
  Sex: Male
  Weight: 61.69 kg

DRUGS (45)
  1. NASEA [Concomitant]
     Active Substance: RAMOSETRON HYDROCHLORIDE
     Dosage: 0.12 MG, QD
     Route: 042
     Dates: start: 20210624, end: 20210628
  2. LIDOCAINE 2% [Concomitant]
     Active Substance: LIDOCAINE
     Indication: PREMEDICATION
     Dosage: 400 MG, QD (400MG/2ML), 2%
     Route: 050
     Dates: start: 20210617, end: 20210617
  3. MORPHINE [Concomitant]
     Active Substance: MORPHINE
     Indication: PREMEDICATION
     Dosage: 0.5 MG, QD (5MG/5ML)
     Route: 050
     Dates: start: 20210617, end: 20210617
  4. MUTERAN [Concomitant]
     Active Substance: ACETYLCYSTEINE
     Dosage: 1 DF, TID
     Route: 042
     Dates: start: 20210624, end: 20210626
  5. FRAXIPARINE [Concomitant]
     Active Substance: NADROPARIN CALCIUM
     Dosage: 0.3 ML, BID (2850UNIT/0.3ML)
     Route: 058
     Dates: start: 20210624, end: 20210630
  6. PLASMA SOLUTION A [Concomitant]
     Dosage: 1000 ML, QD
     Route: 042
     Dates: start: 20210618, end: 20210621
  7. CONCOR [Concomitant]
     Active Substance: BISOPROLOL FUMARATE
     Indication: HYPERTENSION
     Dosage: 1 DF, QD
     Route: 048
     Dates: start: 20210612, end: 20210716
  8. HARNAL [Concomitant]
     Active Substance: TAMSULOSIN HYDROCHLORIDE
     Indication: BENIGN PROSTATIC HYPERPLASIA
     Dosage: 0.2 MG, QD
     Route: 048
     Dates: start: 20081019
  9. ULISTIN [Concomitant]
     Active Substance: ULINASTATIN
     Indication: PROPHYLAXIS
     Dosage: 3 DF, QD, 100000UNIT (3 AMP)
     Route: 042
     Dates: start: 20210617, end: 20210617
  10. MARCAINE [Concomitant]
     Active Substance: BUPIVACAINE HYDROCHLORIDE
     Indication: PREMEDICATION
     Dosage: 20 MG, QD, 0.5%
     Route: 050
     Dates: start: 20210617, end: 20210617
  11. TRANEXAMIC ACID. [Concomitant]
     Active Substance: TRANEXAMIC ACID
     Dosage: 1500 MG, QD
     Route: 050
     Dates: start: 20210624, end: 20210624
  12. TRANEXAMIC ACID. [Concomitant]
     Active Substance: TRANEXAMIC ACID
     Dosage: 1000 ML, QD
     Route: 042
     Dates: start: 20210624, end: 20210624
  13. EPHEDRINE HYDROCHLORIDE [Concomitant]
     Active Substance: EPHEDRINE HYDROCHLORIDE
     Dosage: 40 MG, QD
     Route: 042
     Dates: start: 20210624, end: 20210624
  14. NALOXONE HYDROCHLORIDE. [Concomitant]
     Active Substance: NALOXONE HYDROCHLORIDE
     Indication: PROPHYLAXIS
     Dosage: 2 MG, QD
     Route: 042
     Dates: start: 20210617, end: 20210617
  15. TRANEXAMIC ACID. [Concomitant]
     Active Substance: TRANEXAMIC ACID
     Dosage: 1000 MG, QD
     Route: 042
     Dates: start: 20210617, end: 20210617
  16. K?CONTIN [Concomitant]
     Active Substance: POTASSIUM CHLORIDE
     Dosage: 1 DF, TID(600 MG)
     Route: 048
     Dates: start: 20210625, end: 20210625
  17. OMP S [Concomitant]
     Indication: GASTROINTESTINAL DISORDER PROPHYLAXIS
     Dosage: 40 MG, QD
     Route: 042
     Dates: start: 20210617, end: 20210619
  18. OMP S [Concomitant]
     Dosage: 40 MG, QD
     Route: 042
     Dates: start: 20210624, end: 20210626
  19. TRANEXAMIC ACID. [Concomitant]
     Active Substance: TRANEXAMIC ACID
     Indication: HAEMORRHAGE PROPHYLAXIS
     Dosage: 1500 MG, QD
     Route: 050
     Dates: start: 20210617, end: 20210617
  20. PELUBI [Concomitant]
     Indication: OSTEOARTHRITIS
     Dosage: 1 DF, BID
     Route: 048
     Dates: start: 20201204, end: 20210616
  21. PHOSTEN [Concomitant]
     Indication: HYPOKALAEMIA
     Dosage: 20 ML, QD(2722MG/20ML)
     Route: 042
     Dates: start: 20210621, end: 20210621
  22. NASEA [Concomitant]
     Active Substance: RAMOSETRON HYDROCHLORIDE
     Indication: PROPHYLAXIS OF NAUSEA AND VOMITING
     Dosage: 0.12 MG, QD
     Route: 042
     Dates: start: 20210617, end: 20210622
  23. ULISTIN [Concomitant]
     Active Substance: ULINASTATIN
     Dosage: 3 DF, QD, 100000UNIT (3 AMP)
     Route: 042
     Dates: start: 20210624, end: 20210624
  24. HEPARIN SODIUM. [Concomitant]
     Active Substance: HEPARIN SODIUM
     Indication: THROMBOSIS PROPHYLAXIS
     Dosage: 2000UNIT, QD
     Route: 042
     Dates: start: 20210617, end: 20210617
  25. MARCAINE [Concomitant]
     Active Substance: BUPIVACAINE HYDROCHLORIDE
     Dosage: 20 MG, QD, 0.5%
     Route: 050
     Dates: start: 20210624, end: 20210624
  26. MUTERAN [Concomitant]
     Active Substance: ACETYLCYSTEINE
     Indication: PROPHYLAXIS
     Dosage: 1 DF, TID
     Route: 042
     Dates: start: 20210617, end: 20210620
  27. PLASMA SOLUTION A [Concomitant]
     Indication: HAEMORRHAGE PROPHYLAXIS
     Dosage: 1000 ML, TID
     Route: 042
     Dates: start: 20210617, end: 20210617
  28. ANOREX [Concomitant]
     Active Substance: PHENMETRAZINE HYDROCHLORIDE
     Indication: OSTEOARTHRITIS
     Dosage: 1 DF, BID, CAP
     Route: 048
     Dates: start: 20201204, end: 20210608
  29. K?CONTIN [Concomitant]
     Active Substance: POTASSIUM CHLORIDE
     Indication: HYPOKALAEMIA
     Dosage: 1 DF, QD(600 MG)
     Route: 048
     Dates: start: 20210623, end: 20210624
  30. DOLUTEGRAVIR + LAMIVUDINE [Suspect]
     Active Substance: DOLUTEGRAVIR SODIUM\LAMIVUDINE
     Indication: HIV INFECTION
     Dosage: 1 DF, QD
     Route: 048
     Dates: start: 20201015
  31. NALOXONE HYDROCHLORIDE. [Concomitant]
     Active Substance: NALOXONE HYDROCHLORIDE
     Dosage: 2 MG, QD
     Route: 042
     Dates: start: 20210624, end: 20210624
  32. VOLULYTE 6% [Concomitant]
     Indication: HAEMORRHAGE PROPHYLAXIS
     Dosage: 500 ML, QD, 6%
     Route: 042
     Dates: start: 20210617, end: 20210617
  33. PLASMA SOLUTION A [Concomitant]
     Dosage: 1000 ML, QD
     Route: 042
     Dates: start: 20210625, end: 20210627
  34. LASIX [Concomitant]
     Active Substance: FUROSEMIDE
     Indication: URINE OUTPUT DECREASED
     Dosage: 20 MG, QD
     Route: 042
     Dates: start: 20210618, end: 20210618
  35. MAGNESIUM OXIDE. [Concomitant]
     Active Substance: MAGNESIUM OXIDE
     Indication: CONSTIPATION
     Dosage: 2 DF, TID(250 MG)
     Route: 048
     Dates: start: 20210621, end: 20210628
  36. MAGNESIUM OXIDE. [Concomitant]
     Active Substance: MAGNESIUM OXIDE
     Dosage: 2 DF, BID(250 MG)
     Route: 048
     Dates: start: 20210629, end: 20210629
  37. EPHEDRINE HYDROCHLORIDE [Concomitant]
     Active Substance: EPHEDRINE HYDROCHLORIDE
     Indication: PROPHYLAXIS
     Dosage: 40 MG, QD
     Route: 042
     Dates: start: 20210617, end: 20210617
  38. HEPARIN SODIUM. [Concomitant]
     Active Substance: HEPARIN SODIUM
     Dosage: 2000UNIT, QD
     Route: 042
     Dates: start: 20210624, end: 20210624
  39. LIDOCAINE HYDROCHLORIDE 2% [Concomitant]
     Active Substance: LIDOCAINE HYDROCHLORIDE
     Indication: PREMEDICATION
     Dosage: 400 MG, QD (400MG/20ML), 2%
     Route: 050
     Dates: start: 20210624, end: 20210624
  40. MORPHINE [Concomitant]
     Active Substance: MORPHINE
     Dosage: 0.1 MG, QD
     Route: 050
     Dates: start: 20210624, end: 20210624
  41. FRAXIPARINE [Concomitant]
     Active Substance: NADROPARIN CALCIUM
     Indication: THROMBOSIS PROPHYLAXIS
     Dosage: 0.3 ML, BID (2850UNIT/0.3ML)
     Route: 058
     Dates: start: 20210617, end: 20210620
  42. PLASMA SOLUTION A [Concomitant]
     Dosage: 1000 ML, TID
     Route: 042
     Dates: start: 20210624, end: 20210624
  43. SYNERJET [Concomitant]
     Indication: OSTEOARTHRITIS
     Dosage: 1 DF, BID
     Route: 048
     Dates: start: 20201204, end: 20210608
  44. STOGAR [Concomitant]
     Active Substance: LAFUTIDINE
     Indication: GASTROINTESTINAL DISORDER PROPHYLAXIS
     Dosage: 1 DF, BID
     Route: 048
     Dates: start: 20201204, end: 20210616
  45. NORVASC [Concomitant]
     Active Substance: AMLODIPINE BESYLATE
     Indication: HYPERTENSION
     Dosage: 10 MG, QD
     Route: 048
     Dates: start: 20190930, end: 20210602

REACTIONS (1)
  - Osteonecrosis [Recovered/Resolved]

NARRATIVE: CASE EVENT DATE: 20210509
